FAERS Safety Report 5782988-X (Version None)
Quarter: 2008Q2

REPORT INFORMATION
  Report Type: 
  Country: None (occurrence: None)
  Receive Date: 20080619
  Receipt Date: 20080619
  Transmission Date: 20081010
  Serious: Yes (Other)
  Sender: FDA-Public Use
  Company Number: None

PATIENT
  Age: 4 Year
  Sex: Female
  Weight: 17.2367 kg

DRUGS (3)
  1. SINGULAIR [Suspect]
     Indication: MULTIPLE ALLERGIES
     Dosage: ONE TABLET DAILY
     Dates: start: 20070905, end: 20080401
  2. NASONEX [Concomitant]
  3. ZYRTEC [Concomitant]

REACTIONS (6)
  - ANXIETY [None]
  - CRYING [None]
  - MANIA [None]
  - NEUROSIS [None]
  - OBSESSIVE THOUGHTS [None]
  - REACTION TO COLOURING [None]
